FAERS Safety Report 25236170 (Version 1)
Quarter: 2025Q2

REPORT INFORMATION
  Report Type: Spontaneous
  Country: HR (occurrence: HR)
  Receive Date: 20250424
  Receipt Date: 20250424
  Transmission Date: 20250716
  Serious: Yes (Other)
  Sender: MYLAN
  Company Number: None

PATIENT
  Age: 54 Year
  Sex: Female

DRUGS (12)
  1. XANAX [Suspect]
     Active Substance: ALPRAZOLAM
     Indication: Product used for unknown indication
     Dosage: 4 DOSAGE FORM, QD (1 DF IS 1 TABLET)
     Dates: start: 20250322, end: 20250322
  2. XANAX [Suspect]
     Active Substance: ALPRAZOLAM
     Dosage: 4 DOSAGE FORM, QD (1 DF IS 1 TABLET)
     Route: 048
     Dates: start: 20250322, end: 20250322
  3. XANAX [Suspect]
     Active Substance: ALPRAZOLAM
     Dosage: 4 DOSAGE FORM, QD (1 DF IS 1 TABLET)
     Route: 048
     Dates: start: 20250322, end: 20250322
  4. XANAX [Suspect]
     Active Substance: ALPRAZOLAM
     Dosage: 4 DOSAGE FORM, QD (1 DF IS 1 TABLET)
     Dates: start: 20250322, end: 20250322
  5. WARFARIN [Suspect]
     Active Substance: WARFARIN
     Indication: Product used for unknown indication
     Dosage: 90 MILLIGRAM, QD
     Dates: start: 20250322, end: 20250322
  6. WARFARIN [Suspect]
     Active Substance: WARFARIN
     Dosage: 90 MILLIGRAM, QD
     Route: 048
     Dates: start: 20250322, end: 20250322
  7. WARFARIN [Suspect]
     Active Substance: WARFARIN
     Dosage: 90 MILLIGRAM, QD
     Route: 048
     Dates: start: 20250322, end: 20250322
  8. WARFARIN [Suspect]
     Active Substance: WARFARIN
     Dosage: 90 MILLIGRAM, QD
     Dates: start: 20250322, end: 20250322
  9. NORMABEL [Suspect]
     Active Substance: DIAZEPAM
     Indication: Product used for unknown indication
     Dosage: 30 MILLIGRAM, QD
     Dates: start: 20250322, end: 20250322
  10. NORMABEL [Suspect]
     Active Substance: DIAZEPAM
     Dosage: 30 MILLIGRAM, QD
     Route: 048
     Dates: start: 20250322, end: 20250322
  11. NORMABEL [Suspect]
     Active Substance: DIAZEPAM
     Dosage: 30 MILLIGRAM, QD
     Route: 048
     Dates: start: 20250322, end: 20250322
  12. NORMABEL [Suspect]
     Active Substance: DIAZEPAM
     Dosage: 30 MILLIGRAM, QD
     Dates: start: 20250322, end: 20250322

REACTIONS (2)
  - Suicide attempt [Unknown]
  - No adverse event [Unknown]

NARRATIVE: CASE EVENT DATE: 20250322
